FAERS Safety Report 14194079 (Version 4)
Quarter: 2018Q1

REPORT INFORMATION
  Report Type: Spontaneous
  Country: DE (occurrence: DE)
  Receive Date: 20171116
  Receipt Date: 20180222
  Transmission Date: 20180508
  Serious: Yes (Disabling, Other)
  Sender: FDA-Public Use
  Company Number: PHHY2017DE167226

PATIENT
  Age: 43 Year
  Sex: Female

DRUGS (1)
  1. GILENYA [Suspect]
     Active Substance: FINGOLIMOD HYDROCHLORIDE
     Indication: SECONDARY PROGRESSIVE MULTIPLE SCLEROSIS
     Dosage: 0.5 MG, QD
     Route: 065
     Dates: start: 2015

REACTIONS (28)
  - Gait disturbance [Unknown]
  - Hemiparaesthesia [Unknown]
  - Ataxia [Unknown]
  - Urge incontinence [Unknown]
  - Mean cell haemoglobin concentration abnormal [Unknown]
  - Walking distance test abnormal [Unknown]
  - Paresis [Unknown]
  - Nocturia [Unknown]
  - Intention tremor [Unknown]
  - Quadriplegia [Unknown]
  - Product use in unapproved indication [Unknown]
  - Abdominal distension [Unknown]
  - Constipation [Unknown]
  - Motor dysfunction [Unknown]
  - Limb discomfort [Unknown]
  - Nervous system disorder [Unknown]
  - Back disorder [Unknown]
  - Hypoaesthesia [Unknown]
  - Sleep disorder [Unknown]
  - Incontinence [Unknown]
  - Blood triglycerides increased [Unknown]
  - C-reactive protein abnormal [Unknown]
  - Sinus tachycardia [Unknown]
  - Underweight [Unknown]
  - Fatigue [Unknown]
  - Electrocardiogram ST segment depression [Unknown]
  - Haematuria [Unknown]
  - Sensory loss [Unknown]
